FAERS Safety Report 13531683 (Version 2)
Quarter: 2017Q2

REPORT INFORMATION
  Report Type: Report from Study
  Country: US (occurrence: US)
  Receive Date: 20170510
  Receipt Date: 20170523
  Transmission Date: 20170830
  Serious: Yes (Hospitalization)
  Sender: FDA-Public Use
  Company Number: US-GILEAD-2017-0270038

PATIENT
  Age: 11 Year
  Sex: Female
  Weight: 34 kg

DRUGS (13)
  1. MELATONIN [Concomitant]
     Active Substance: MELATONIN
  2. IMODIUM [Concomitant]
     Active Substance: LOPERAMIDE HYDROCHLORIDE
  3. REMODULIN [Concomitant]
     Active Substance: TREPROSTINIL
     Dosage: 76 NG/KG/MIN
  4. COUMADIN [Concomitant]
     Active Substance: WARFARIN SODIUM
  5. IRON                               /00023503/ [Concomitant]
     Active Substance: IRON
  6. AMBRISENTAN [Suspect]
     Active Substance: AMBRISENTAN
     Indication: PULMONARY ARTERIAL HYPERTENSION
     Dosage: 5 MG, QD
     Route: 065
     Dates: start: 20150312
  7. ADCIRCA [Concomitant]
     Active Substance: TADALAFIL
  8. DIGOXIN. [Concomitant]
     Active Substance: DIGOXIN
  9. KENALOG [Concomitant]
     Active Substance: TRIAMCINOLONE ACETONIDE
  10. REMODULIN [Concomitant]
     Active Substance: TREPROSTINIL
     Dosage: 77 NG/KG/MIN
  11. SILDENAFIL CITRATE. [Concomitant]
     Active Substance: SILDENAFIL CITRATE
  12. OXYGEN. [Concomitant]
     Active Substance: OXYGEN
  13. FLINTSTONES COMPLETE               /02265901/ [Concomitant]

REACTIONS (2)
  - Off label use [Not Recovered/Not Resolved]
  - Oxygen saturation decreased [Recovered/Resolved]

NARRATIVE: CASE EVENT DATE: 20150312
